FAERS Safety Report 17158654 (Version 1)
Quarter: 2019Q4

REPORT INFORMATION
  Report Type: Spontaneous
  Country: US (occurrence: US)
  Receive Date: 20191216
  Receipt Date: 20191216
  Transmission Date: 20200122
  Serious: No
  Sender: FDA-Public Use
  Company Number: US-ENDO PHARMACEUTICALS INC-2019-107362

PATIENT
  Age: 64 Year
  Sex: Male
  Weight: 92.97 kg

DRUGS (10)
  1. PREDNISONE. [Concomitant]
     Active Substance: PREDNISONE
     Indication: LUPUS-LIKE SYNDROME
  2. HYDROCODONE BITARTRATE AND ACETAMINOPHEN [Concomitant]
     Active Substance: ACETAMINOPHEN\HYDROCODONE BITARTRATE
     Indication: LUPUS-LIKE SYNDROME
  3. XIAFLEX [Suspect]
     Active Substance: COLLAGENASE CLOSTRIDIUM HISTOLYTICUM
     Dosage: 0.58 MG, CYCLE 1, INJECTION 2
     Route: 026
     Dates: start: 20190819
  4. XIAFLEX [Suspect]
     Active Substance: COLLAGENASE CLOSTRIDIUM HISTOLYTICUM
     Indication: PEYRONIE^S DISEASE
     Dosage: 0.58 MG, CYCLE 1, INJECTION 1
     Route: 026
     Dates: start: 20190812
  5. HYDROXYCHLOROQUINE [Concomitant]
     Active Substance: HYDROXYCHLOROQUINE
     Indication: LUPUS-LIKE SYNDROME
  6. FOLIC ACID. [Concomitant]
     Active Substance: FOLIC ACID
     Indication: LUPUS-LIKE SYNDROME
  7. VITAMIN D                          /07503901/ [Concomitant]
     Active Substance: VITAMIN D NOS
     Indication: LUPUS-LIKE SYNDROME
  8. VITAMIN B COMPLEX [Concomitant]
     Active Substance: CYANOCOBALAMIN\DEXPANTHENOL\NIACINAMIDE\PYRIDOXINE HYDROCHLORIDE\RIBOFLAVIN 5^-PHOSPHATE SODIUM\THIAMINE HYDROCHLORIDE\VITAMIN B COMPLEX
     Indication: LUPUS-LIKE SYNDROME
  9. FOSAMAX [Concomitant]
     Active Substance: ALENDRONATE SODIUM
     Indication: LUPUS-LIKE SYNDROME
  10. OSTEO BI-FLEX                      /01431201/ [Concomitant]
     Indication: SUPPLEMENTATION THERAPY

REACTIONS (13)
  - Penile erythema [Recovered/Resolved]
  - Penile haemorrhage [Recovered/Resolved]
  - Scrotal swelling [Recovered/Resolved]
  - Penile burning sensation [Recovered/Resolved]
  - Skin plaque [Recovered/Resolved]
  - Ecchymosis [Recovered/Resolved]
  - Genital burning sensation [Recovered/Resolved]
  - Skin warm [Recovered/Resolved]
  - Inflammation [Recovered/Resolved]
  - Scrotal erythema [Recovered/Resolved]
  - Pruritus genital [Recovered/Resolved]
  - Penile swelling [Recovered/Resolved]
  - Penile contusion [Recovered/Resolved]

NARRATIVE: CASE EVENT DATE: 20190812
